FAERS Safety Report 8087643-1 (Version None)
Quarter: 2012Q1

REPORT INFORMATION
  Report Type: 
  Country: None (occurrence: None)
  Receive Date: 20120128
  Receipt Date: 20110525
  Transmission Date: 20120608
  Serious: No
  Sender: FDA-Public Use
  Company Number: US-ABBOTT-11P-163-0728682-00

PATIENT
  Sex: Female

DRUGS (9)
  1. AMRIX [Concomitant]
     Indication: MUSCLE SPASMS
  2. LIBRAX [Concomitant]
     Indication: IRRITABLE BOWEL SYNDROME
  3. FISH OIL [Concomitant]
     Indication: MINERAL SUPPLEMENTATION
  4. LANSOPRAZOLE [Concomitant]
     Indication: GASTROOESOPHAGEAL REFLUX DISEASE
  5. PERCOCET [Concomitant]
     Indication: ANKYLOSING SPONDYLITIS
  6. VITAMIN D [Concomitant]
     Indication: VITAMIN SUPPLEMENTATION
  7. MAXALT [Concomitant]
     Indication: MIGRAINE
  8. HUMIRA [Suspect]
     Indication: ANKYLOSING SPONDYLITIS
     Route: 058
  9. CALCIUM [Concomitant]
     Indication: VITAMIN SUPPLEMENTATION

REACTIONS (1)
  - FUNGAL INFECTION [None]
